FAERS Safety Report 4885798-0 (Version None)
Quarter: 2006Q1

REPORT INFORMATION
  Report Type: 
  Country: None (occurrence: None)
  Receive Date: 20060117
  Receipt Date: 20060103
  Transmission Date: 20060701
  Serious: Yes (Hospitalization)
  Sender: FDA-Public Use
  Company Number: 2006003903

PATIENT
  Age: 81 Year
  Sex: Female

DRUGS (1)
  1. AROMASIN (EXEMESTNE) [Suspect]
     Indication: BREAST CANCER FEMALE
     Dosage: 25 MG (25 MG, 1 IN 1 D), ORAL
     Route: 048
     Dates: start: 20050324

REACTIONS (1)
  - MESENTERIC ARTERY THROMBOSIS [None]
